FAERS Safety Report 19776792 (Version 1)
Quarter: 2021Q3

REPORT INFORMATION
  Report Type: Other
  Country: CN (occurrence: CN)
  Receive Date: 20210901
  Receipt Date: 20210901
  Transmission Date: 20211014
  Serious: Yes (Hospitalization)
  Sender: FDA-Public Use
  Company Number: CN-ROCHE-2901043

PATIENT
  Age: 47 Year
  Sex: Male

DRUGS (3)
  1. ETOPOSIDE. [Concomitant]
     Active Substance: ETOPOSIDE
  2. CARBOPLATIN. [Concomitant]
     Active Substance: CARBOPLATIN
  3. ATEZOLIZUMAB. [Suspect]
     Active Substance: ATEZOLIZUMAB
     Indication: SMALL CELL LUNG CANCER
     Dosage: 1200 MG D1
     Route: 041

REACTIONS (1)
  - Anaphylactic shock [Recovered/Resolved]
